FAERS Safety Report 25927114 (Version 1)
Quarter: 2025Q4

REPORT INFORMATION
  Report Type: Report from Study
  Country: US (occurrence: US)
  Receive Date: 20251015
  Receipt Date: 20251015
  Transmission Date: 20260117
  Serious: Yes (Hospitalization, Other)
  Sender: ABBVIE
  Company Number: US-ABBVIE-6501872

PATIENT
  Sex: Male

DRUGS (1)
  1. HUMIRA [Suspect]
     Active Substance: ADALIMUMAB
     Indication: Crohn^s disease
     Dosage: FORM STRENGTH 40 MILLIGRAM,  HUMIRA CITRATE FREE PEN
     Route: 058
     Dates: start: 20241213

REACTIONS (4)
  - Crohn^s disease [Unknown]
  - Appendix disorder [Unknown]
  - Intestinal resection [Unknown]
  - Drug ineffective [Unknown]
